FAERS Safety Report 18018560 (Version 4)
Quarter: 2021Q2

REPORT INFORMATION
  Report Type: Spontaneous
  Country: JP (occurrence: JP)
  Receive Date: 20200714
  Receipt Date: 20210625
  Transmission Date: 20210717
  Serious: Yes (Hospitalization)
  Sender: FDA-Public Use
  Company Number: JP-ASTELLAS-2020JP009962

PATIENT
  Age: 21 Year
  Sex: Male
  Weight: 59 kg

DRUGS (13)
  1. PROGRAF [Suspect]
     Active Substance: TACROLIMUS
     Dosage: 10 MG/DAY, UNKNOWN FREQ.
     Route: 048
     Dates: start: 20200422
  2. PROGRAF [Suspect]
     Active Substance: TACROLIMUS
     Dosage: 14 MG/DAY, UNKNOWN FREQ.
     Route: 048
     Dates: start: 20200503
  3. PROGRAF [Suspect]
     Active Substance: TACROLIMUS
     Dosage: 12 MG/DAY, UNKNOWN FREQ.
     Route: 048
     Dates: start: 20200515
  4. PROGRAF [Suspect]
     Active Substance: TACROLIMUS
     Dosage: 9 MG/DAY, UNKNOWN FREQ.
     Route: 048
     Dates: start: 20200619
  5. PROGRAF [Suspect]
     Active Substance: TACROLIMUS
     Dosage: 5 MG/DAY, UNKNOWN FREQ.
     Route: 048
     Dates: start: 20200707, end: 20200721
  6. PROGRAF [Suspect]
     Active Substance: TACROLIMUS
     Indication: COLITIS ULCERATIVE
     Route: 048
     Dates: start: 20200417
  7. FAMOTIDINE. [Concomitant]
     Active Substance: FAMOTIDINE
     Indication: COLITIS ULCERATIVE
     Route: 048
     Dates: start: 20200221
  8. PROGRAF [Suspect]
     Active Substance: TACROLIMUS
     Dosage: 12 MG/DAY, UNKNOWN FREQ.
     Route: 048
     Dates: start: 20200427
  9. PROGRAF [Suspect]
     Active Substance: TACROLIMUS
     Dosage: 13 MG/DAY, UNKNOWN FREQ.
     Route: 048
     Dates: start: 20200512
  10. PROGRAF [Suspect]
     Active Substance: TACROLIMUS
     Dosage: 11 MG/DAY, UNKNOWN FREQ.
     Route: 048
     Dates: start: 20200522, end: 20200618
  11. PREDONINE [Concomitant]
     Active Substance: PREDNISOLONE
     Indication: COLITIS ULCERATIVE
     Route: 048
     Dates: start: 20200417, end: 20200619
  12. PENTASA [Concomitant]
     Active Substance: MESALAMINE
     Indication: COLITIS ULCERATIVE
     Route: 048
     Dates: start: 20191121
  13. MIYA?BM [Concomitant]
     Active Substance: CLOSTRIDIUM BUTYRICUM SPORES STRAIN M-55
     Indication: COLITIS ULCERATIVE
     Route: 048
     Dates: start: 20191121

REACTIONS (3)
  - Prescribed overdose [Unknown]
  - Drug level increased [Recovered/Resolved]
  - Drug level decreased [Recovered/Resolved]

NARRATIVE: CASE EVENT DATE: 20200417
